FAERS Safety Report 10755550 (Version 2)
Quarter: 2015Q2

REPORT INFORMATION
  Report Type: Spontaneous
  Country: IT (occurrence: IT)
  Receive Date: 20150202
  Receipt Date: 20150504
  Transmission Date: 20150821
  Serious: Yes (Hospitalization)
  Sender: FDA-Public Use
  Company Number: IT-PFIZER INC-2015040472

PATIENT
  Age: 54 Year
  Sex: Female

DRUGS (4)
  1. DEPAKENE [Suspect]
     Active Substance: VALPROIC ACID
     Dosage: 1500 MG, SINGLE
     Route: 048
     Dates: start: 20150103, end: 20150103
  2. TAVOR [Suspect]
     Active Substance: LORAZEPAM
     Dosage: 100 MG, SINGLE
     Route: 048
     Dates: start: 20150103, end: 20150103
  3. ZOLOFT [Suspect]
     Active Substance: SERTRALINE HYDROCHLORIDE
     Dosage: 150 MG, SINGLE
     Route: 048
     Dates: start: 20150103, end: 20150103
  4. CARBOLITHIUM [Suspect]
     Active Substance: LITHIUM CARBONATE
     Dosage: 300 MG, SINGLE
     Route: 048
     Dates: start: 20150103, end: 20150103

REACTIONS (3)
  - Drug abuse [Recovered/Resolved]
  - Intentional self-injury [Recovered/Resolved]
  - Agitation [Recovered/Resolved]

NARRATIVE: CASE EVENT DATE: 20150103
